FAERS Safety Report 8504899-9 (Version None)
Quarter: 2012Q3

REPORT INFORMATION
  Report Type: 
  Country: None (occurrence: None)
  Receive Date: 20120712
  Receipt Date: 20120706
  Transmission Date: 20120928
  Serious: Yes (Hospitalization, Other)
  Sender: FDA-Public Use
  Company Number: PHHY2010CA01904

PATIENT
  Sex: Female

DRUGS (10)
  1. PREVACID [Concomitant]
  2. SANDOSTATIN LAR [Suspect]
     Dosage: 10 MG, QMO
     Route: 030
  3. LIPITOR [Concomitant]
  4. METFORMIN HCL [Concomitant]
  5. SANDOSTATIN LAR [Suspect]
     Indication: NEUROENDOCRINE TUMOUR
     Dosage: 20 MG EVERY 4 WEEKS
     Route: 030
     Dates: start: 20090629
  6. GLYBURIDE [Concomitant]
  7. DIOVAN [Concomitant]
  8. ASPIRIN [Concomitant]
  9. SANDOSTATIN LAR [Suspect]
     Dosage: 10 MG EVERY 28 DAYS
     Route: 030
     Dates: start: 20090601
  10. ADALAT [Concomitant]
     Dosage: 30 MG, QD

REACTIONS (6)
  - PULMONARY OEDEMA [None]
  - BLOOD PRESSURE SYSTOLIC INCREASED [None]
  - URINARY TRACT INFECTION [None]
  - PERICARDIAL EFFUSION [None]
  - GASTROINTESTINAL HAEMORRHAGE [None]
  - ULCER [None]
